FAERS Safety Report 7248711-7 (Version None)
Quarter: 2011Q1

REPORT INFORMATION
  Report Type: 
  Country: None (occurrence: None)
  Receive Date: 20110121
  Receipt Date: 20110121
  Transmission Date: 20110831
  Serious: No
  Sender: FDA-Public Use
  Company Number: None

PATIENT
  Age: 69 Year
  Sex: Male

DRUGS (7)
  1. RIFAMATE [Suspect]
     Dosage: 300MG BID
     Dates: start: 20080109, end: 20080609
  2. ALLOPURINOL [Concomitant]
  3. ATENOLOL [Concomitant]
  4. PREVACID [Concomitant]
  5. PROTONIX [Concomitant]
  6. RIFAMATE [Suspect]
     Dosage: 600MG BID
     Dates: start: 20080109, end: 20080609
  7. AMPLOPIDINE [Concomitant]

REACTIONS (6)
  - MUSCLE SPASMS [None]
  - ACUTE HEPATIC FAILURE [None]
  - RENAL FAILURE ACUTE [None]
  - HEPATIC ENCEPHALOPATHY [None]
  - CARDIAC ARREST [None]
  - PAIN [None]
